FAERS Safety Report 23897790 (Version 3)
Quarter: 2024Q2

REPORT INFORMATION
  Report Type: Spontaneous
  Country: FR (occurrence: FR)
  Receive Date: 20240524
  Receipt Date: 20240619
  Transmission Date: 20240716
  Serious: Yes (Hospitalization, Other)
  Sender: FDA-Public Use
  Company Number: FR-AFSSAPS-CN2024000464

PATIENT
  Age: 36 Year
  Sex: Female
  Weight: 48 kg

DRUGS (2)
  1. AZTREONAM LYSINE [Suspect]
     Active Substance: AZTREONAM LYSINE
     Indication: Peritonitis bacterial
     Dosage: 6 G, QD [2,000 MG Q8H FOR TWO DAYS]
     Route: 042
     Dates: start: 20240416, end: 20240418
  2. LINEZOLID [Suspect]
     Active Substance: LINEZOLID
     Indication: Peritonitis bacterial
     Dosage: 1.2 G, QD [600 MG Q12H]
     Route: 042
     Dates: start: 20240417, end: 20240422

REACTIONS (1)
  - Cholestatic liver injury [Not Recovered/Not Resolved]

NARRATIVE: CASE EVENT DATE: 20240422
